FAERS Safety Report 24136810 (Version 1)
Quarter: 2024Q3

REPORT INFORMATION
  Report Type: Spontaneous
  Country: ES (occurrence: ES)
  Receive Date: 20240725
  Receipt Date: 20240725
  Transmission Date: 20241017
  Serious: Yes (Hospitalization)
  Sender: PFIZER
  Company Number: ES-PFIZER INC-202400220412

PATIENT
  Age: 62 Year
  Sex: Male

DRUGS (18)
  1. CARBOPLATIN [Suspect]
     Active Substance: CARBOPLATIN
     Indication: Lung adenocarcinoma
     Dosage: 660.75 MG, EVERY 3 WEEKS
     Dates: start: 20240527
  2. CARBOPLATIN [Suspect]
     Active Substance: CARBOPLATIN
     Dosage: 660.75 MG, EVERY 3 WEEKS
     Route: 042
     Dates: start: 20240617
  3. NIVOLUMAB [Concomitant]
     Active Substance: NIVOLUMAB
     Indication: Lung adenocarcinoma
     Dosage: 405 MG, EVERY 3 WEEKS
  4. ONDANSETRON [Concomitant]
     Active Substance: ONDANSETRON
     Indication: Prophylaxis of nausea and vomiting
     Dosage: 8 MG, EVERY 3 WEEKS
  5. DEXAMETHASONE [Concomitant]
     Active Substance: DEXAMETHASONE
     Indication: Prophylaxis of nausea and vomiting
     Dosage: 20 MG, EVERY 3 WEEKS
  6. PEMETREXED [Concomitant]
     Active Substance: PEMETREXED
     Indication: Lung adenocarcinoma
     Dosage: 1010 MG, EVERY 3 WEEKS
  7. HYDROCHLOROTHIAZIDE\VALSARTAN [Concomitant]
     Active Substance: HYDROCHLOROTHIAZIDE\VALSARTAN
     Indication: Hypertension
     Dosage: 1 DF, 1X/DAY
  8. DEXAMETHASONE [Concomitant]
     Active Substance: DEXAMETHASONE
     Indication: Prophylaxis of nausea and vomiting
     Dosage: 4 MG, 2X/DAY
  9. BUDESONIDE\FORMOTEROL [Concomitant]
     Active Substance: BUDESONIDE\FORMOTEROL
     Indication: Asthma
     Dosage: 1 DF, 2X/DAY
  10. FOLIC ACID AND VITAMIN B12 [Concomitant]
     Indication: Vitamin B12 deficiency
     Dosage: 1 DF, 1X/DAY
  11. FOLIC ACID AND VITAMIN B12 [Concomitant]
     Indication: Folate deficiency
  12. LANSOPRAZOLE [Concomitant]
     Active Substance: LANSOPRAZOLE
     Indication: Prophylaxis against gastrointestinal ulcer
     Dosage: 15 MG, 1X/DAY
  13. METOCLOPRAMIDE [Concomitant]
     Active Substance: METOCLOPRAMIDE
     Indication: Prophylaxis of nausea and vomiting
     Dosage: 10 MG, 3X/DAY
  14. CIANOCOBALAMINA [Concomitant]
     Indication: Vitamin B12 deficiency
     Dosage: 1 DF, WEEKLY
  15. ACETAMINOPHEN [Concomitant]
     Active Substance: ACETAMINOPHEN
     Indication: Pain
     Dosage: 1 DF, 1X/DAY
  16. DEXCHLORPHENIRAMINE [Concomitant]
     Active Substance: DEXCHLORPHENIRAMINE
     Indication: Allergy prophylaxis
     Dosage: 1 DF, 4X/DAY
  17. CICLOPIROX OLAMINE [Concomitant]
     Active Substance: CICLOPIROX OLAMINE
     Indication: Dermatitis
     Dosage: 1 DF, EVERY 72H
  18. NAPROXEN [Concomitant]
     Active Substance: NAPROXEN
     Indication: Pain
     Dosage: 1 DF, 1X/DAY

REACTIONS (4)
  - Septic shock [Recovering/Resolving]
  - Diverticulitis [Recovering/Resolving]
  - Pancytopenia [Recovering/Resolving]
  - Off label use [Unknown]

NARRATIVE: CASE EVENT DATE: 20240527
